FAERS Safety Report 10099071 (Version 1)
Quarter: 2014Q2

REPORT INFORMATION
  Report Type: Spontaneous
  Country: NP (occurrence: None)
  Receive Date: 20140422
  Receipt Date: 20140422
  Transmission Date: 20141212
  Serious: No
  Sender: FDA-Public Use
  Company Number: None

PATIENT
  Age: 25 Year
  Sex: Male
  Weight: 65 kg

DRUGS (2)
  1. EBASTINE [Suspect]
     Indication: URTICARIA
     Dosage: TAKEN BY MOUTH
     Dates: start: 20140413, end: 20140418
  2. IVERMECTIN [Suspect]
     Dosage: TAKEN BY MOUTH

REACTIONS (2)
  - Erectile dysfunction [None]
  - Ejaculation delayed [None]
